FAERS Safety Report 8457152-6 (Version None)
Quarter: 2012Q2

REPORT INFORMATION
  Report Type: 
  Country: None (occurrence: None)
  Receive Date: 20120615
  Receipt Date: 20120611
  Transmission Date: 20120825
  Serious: Yes (Other)
  Sender: FDA-Public Use
  Company Number: AUR-APL-2012-02210

PATIENT
  Age: 30 Year
  Sex: Male

DRUGS (3)
  1. SINEMET [Suspect]
     Indication: PRODUCT USED FOR UNKNOWN INDICATION
  2. RISPERIDONE [Suspect]
     Indication: CHOREA
     Dosage: 0.5 MG, 1 D
  3. TETRABENAZINE (TETRABENAZINE) [Suspect]
     Indication: PRODUCT USED FOR UNKNOWN INDICATION
     Dosage: 25 MG (12.5 MG, 2 IN 1 D)

REACTIONS (4)
  - SEDATION [None]
  - GAIT DISTURBANCE [None]
  - FALL [None]
  - PANIC ATTACK [None]
